FAERS Safety Report 9817227 (Version 1)
Quarter: 2014Q1

REPORT INFORMATION
  Report Type: Spontaneous
  Country: CA (occurrence: CA)
  Receive Date: 20140114
  Receipt Date: 20140114
  Transmission Date: 20141002
  Serious: Yes (Hospitalization, Other)
  Sender: FDA-Public Use
  Company Number: CA-AMGEN-CANSP2014001879

PATIENT
  Age: 64 Year
  Sex: Female

DRUGS (7)
  1. ENBREL [Suspect]
     Indication: PSORIATIC ARTHROPATHY
     Dosage: 50 MG, UNK
     Route: 065
     Dates: start: 20130503
  2. METHOTREXATE                       /00113802/ [Concomitant]
     Dosage: UNK
     Route: 058
  3. MAXALT [Concomitant]
     Dosage: 40 MG, AS NECESSARY
  4. CALCIUM [Concomitant]
     Dosage: UNK
  5. B COMPLEX                          /06817001/ [Concomitant]
     Dosage: UNK
  6. NIACIN [Concomitant]
     Dosage: 1000 MG, UNK
  7. VITAMIN D                          /00107901/ [Concomitant]
     Dosage: UNK

REACTIONS (5)
  - Pancreatitis [Recovered/Resolved]
  - Pain [Recovered/Resolved]
  - Bunion [Recovering/Resolving]
  - Local swelling [Not Recovered/Not Resolved]
  - Pain in extremity [Not Recovered/Not Resolved]
